FAERS Safety Report 5061099-5 (Version None)
Quarter: 2006Q3

REPORT INFORMATION
  Report Type: 
  Country: None (occurrence: None)
  Receive Date: 20060720
  Receipt Date: 20060710
  Transmission Date: 20061208
  Serious: Yes (Life-Threatening, Other)
  Sender: FDA-Public Use
  Company Number: 2006085414

PATIENT
  Age: 41 Year
  Sex: Female
  Weight: 74.8435 kg

DRUGS (5)
  1. ZOLOFT [Suspect]
     Indication: DEPRESSION
     Dosage: 25 MG (25 MG, 1 IN 1 D)
     Dates: start: 20060708
  2. WELLBUTRIN [Suspect]
     Indication: DEPRESSION
  3. ACETYLSALICYLIC ACID SRT [Concomitant]
  4. CALCIUM GLUCONATE [Concomitant]
  5. VITAMINS [Concomitant]

REACTIONS (7)
  - CEREBROVASCULAR ACCIDENT [None]
  - DRUG INEFFECTIVE [None]
  - FEELING ABNORMAL [None]
  - FEELING JITTERY [None]
  - INSOMNIA [None]
  - VOMITING [None]
  - WEIGHT DECREASED [None]
